FAERS Safety Report 11001214 (Version 2)
Quarter: 2017Q2

REPORT INFORMATION
  Report Type: Spontaneous
  Country: US (occurrence: US)
  Receive Date: 20150408
  Receipt Date: 20170412
  Transmission Date: 20170829
  Serious: No
  Sender: FDA-Public Use
  Company Number: US-SA-2015SA001528

PATIENT
  Age: 73 Year
  Sex: Female

DRUGS (1)
  1. ALLEGRA ALLERGY [Suspect]
     Active Substance: FEXOFENADINE HYDROCHLORIDE
     Dosage: SHE SWITCHES BACK AND FORTH BETWEEN ZYRTEC AND ALLEGRA?STARTED TAKING WEEK AGO
     Route: 048

REACTIONS (3)
  - Expired product administered [Unknown]
  - Dizziness [Unknown]
  - Drug ineffective [Unknown]
